FAERS Safety Report 8583920-6 (Version None)
Quarter: 2012Q3

REPORT INFORMATION
  Report Type: 
  Country: None (occurrence: None)
  Receive Date: 20120810
  Receipt Date: 20120717
  Transmission Date: 20120928
  Serious: No
  Sender: FDA-Public Use
  Company Number: KR-009507513-1207USA007043

PATIENT

DRUGS (3)
  1. TEMODAR [Suspect]
     Dosage: 75 MG/M2, QD
  2. TEMODAR [Suspect]
     Indication: GLIOBLASTOMA MULTIFORME
     Dosage: UNK
  3. BEVACIZUMAB [Suspect]
     Indication: GLIOBLASTOMA MULTIFORME
     Dosage: 10 MG/KG, EVERY 2 WEEKS

REACTIONS (1)
  - DISEASE PROGRESSION [None]
